FAERS Safety Report 5227387-4 (Version None)
Quarter: 2007Q1

REPORT INFORMATION
  Report Type: 
  Country: None (occurrence: None)
  Receive Date: 20070202
  Receipt Date: 20070125
  Transmission Date: 20070707
  Serious: Yes (Hospitalization)
  Sender: FDA-Public Use
  Company Number: 2007PK00163

PATIENT
  Age: 86 Year
  Sex: Female
  Weight: 43 kg

DRUGS (20)
  1. NEXIUM [Suspect]
     Route: 048
  2. CORDARONE [Interacting]
     Indication: ATRIAL FIBRILLATION
     Route: 048
     Dates: start: 20061028
  3. CORDARONE [Interacting]
     Indication: ATRIAL FLUTTER
     Route: 048
     Dates: start: 20061028
  4. SINTROM [Interacting]
     Indication: ATRIAL FIBRILLATION
     Route: 048
     Dates: start: 20060927, end: 20061118
  5. SINTROM [Interacting]
     Indication: ATRIAL FLUTTER
     Route: 048
     Dates: start: 20060927, end: 20061118
  6. SINTROM [Interacting]
     Route: 048
     Dates: start: 20061118, end: 20061118
  7. SINTROM [Interacting]
     Route: 048
     Dates: start: 20061118, end: 20061118
  8. SINTROM [Interacting]
     Route: 048
     Dates: start: 20061120, end: 20061120
  9. SINTROM [Interacting]
     Route: 048
     Dates: start: 20061120, end: 20061120
  10. SINTROM [Interacting]
     Route: 048
     Dates: start: 20061121, end: 20061122
  11. SINTROM [Interacting]
     Route: 048
     Dates: start: 20061121, end: 20061122
  12. SINTROM [Interacting]
     Route: 048
     Dates: start: 20061124
  13. SINTROM [Interacting]
     Route: 048
     Dates: start: 20061124
  14. DIGOXIN [Concomitant]
     Route: 048
     Dates: start: 20061105, end: 20061111
  15. DIGOXIN [Concomitant]
     Route: 048
     Dates: start: 20061111
  16. SOTALOL HCL [Concomitant]
     Indication: ATRIAL FIBRILLATION
     Route: 048
     Dates: start: 20061025, end: 20061109
  17. SOTALOL HCL [Concomitant]
     Indication: ATRIAL FLUTTER
     Route: 048
     Dates: start: 20061025, end: 20061109
  18. DILZEM [Concomitant]
     Dates: end: 20061025
  19. LIQUAEMIN INJ [Concomitant]
     Indication: ANTICOAGULANT THERAPY
     Dates: start: 20060830, end: 20060912
  20. CLEXANE [Concomitant]
     Indication: ANTICOAGULANT THERAPY
     Dates: start: 20060913, end: 20061004

REACTIONS (5)
  - DRUG INTERACTION [None]
  - EPISTAXIS [None]
  - HAEMATURIA [None]
  - POSTMENOPAUSAL HAEMORRHAGE [None]
  - PROTHROMBIN TIME PROLONGED [None]
